FAERS Safety Report 5754991-7 (Version None)
Quarter: 2008Q2

REPORT INFORMATION
  Report Type: 
  Country: None (occurrence: None)
  Receive Date: 20080527
  Receipt Date: 20080513
  Transmission Date: 20081010
  Serious: Yes (Death, Other)
  Sender: FDA-Public Use
  Company Number: 230555J08USA

PATIENT
  Age: 61 Year
  Sex: Male

DRUGS (10)
  1. REBIF [Suspect]
     Indication: MULTIPLE SCLEROSIS
     Dosage: 44 MCG, 3 IN 1 WEEKS, SUBCUTANEOUS
     Route: 058
     Dates: start: 20020430, end: 20071230
  2. UNSPECIFIED INFUSION MEDICATION (ALL OTHER THERAPEUTIC PRODUCTS) [Suspect]
     Indication: MULTIPLE SCLEROSIS
     Dosage: ONCE, INTRAVENOUS
     Route: 042
     Dates: start: 20071220, end: 20071220
  3. TOPROL-XL [Concomitant]
  4. UNSPECIFIED MEDICATION (ALL OTHER THERAPEUTIC PRODUCTS) [Concomitant]
  5. ARICEPT [Concomitant]
  6. LIPITOR [Concomitant]
  7. ALTACE [Concomitant]
  8. LASIX (FUROSEMIDE /00032601/) [Concomitant]
  9. LEXAPRO [Concomitant]
  10. NORVASC [Concomitant]

REACTIONS (2)
  - CARDIAC VALVE RUPTURE [None]
  - CEREBROVASCULAR ACCIDENT [None]
